FAERS Safety Report 16953633 (Version 2)
Quarter: 2020Q1

REPORT INFORMATION
  Report Type: Spontaneous
  Country: US (occurrence: US)
  Receive Date: 20191023
  Receipt Date: 20200123
  Transmission Date: 20200409
  Serious: No
  Sender: FDA-Public Use
  Company Number: US-DERMIRA, INC.-US-2019DER000433

PATIENT
  Age: 21 Year
  Sex: Male
  Weight: 90.7 kg

DRUGS (1)
  1. QBREXZA [Suspect]
     Active Substance: GLYCOPYRRONIUM TOSYLATE
     Indication: HYPERHIDROSIS
     Dosage: UNK, QD
     Route: 061
     Dates: start: 20190718, end: 20190722

REACTIONS (8)
  - Malaise [Unknown]
  - Glassy eyes [Unknown]
  - Dehydration [Unknown]
  - Mydriasis [Unknown]
  - Ocular hyperaemia [Unknown]
  - Dry skin [Not Recovered/Not Resolved]
  - Dysuria [Not Recovered/Not Resolved]
  - Nasal dryness [Unknown]

NARRATIVE: CASE EVENT DATE: 20190719
